FAERS Safety Report 24150584 (Version 1)
Quarter: 2024Q3

REPORT INFORMATION
  Report Type: Spontaneous
  Country: JP (occurrence: JP)
  Receive Date: 20240730
  Receipt Date: 20240730
  Transmission Date: 20241017
  Serious: Yes (Hospitalization)
  Sender: CHEPLAPHARM
  Company Number: JP-ELI_LILLY_AND_COMPANY-JP202407013180

PATIENT
  Age: 7 Decade
  Sex: Male
  Weight: 54 kg

DRUGS (14)
  1. OLANZAPINE [Suspect]
     Active Substance: OLANZAPINE
     Indication: Hallucination, visual
     Dosage: 2.5 MG, DAILY?DAILY DOSE: 2.5 MILLIGRAM
     Route: 048
  2. OLANZAPINE [Suspect]
     Active Substance: OLANZAPINE
     Indication: Screaming
     Dosage: 2.5 MG, DAILY?DAILY DOSE: 2.5 MILLIGRAM
     Route: 048
  3. AMANTADINE HYDROCHLORIDE [Concomitant]
     Active Substance: AMANTADINE HYDROCHLORIDE
     Indication: Parkinson^s disease
     Dosage: 100 MG, DAILY?DAILY DOSE: 100 MILLIGRAM
  4. VALSARTAN [Concomitant]
     Active Substance: VALSARTAN
     Dosage: 80 MG, DAILY?DAILY DOSE: 80 MILLIGRAM
  5. HYDROCHLOROTHIAZIDE [Concomitant]
     Active Substance: HYDROCHLOROTHIAZIDE
     Dosage: 6.25 MG, DAILY?DAILY DOSE: 6.25 MILLIGRAM
  6. TENELIGLIPTIN HYDROBROMIDE HYDRATE [Concomitant]
     Active Substance: TENELIGLIPTIN HYDROBROMIDE HYDRATE
     Dosage: 20 MG, DAILY?DAILY DOSE: 20 MILLIGRAM
  7. DONEPEZIL HYDROCHLORIDE [Concomitant]
     Active Substance: DONEPEZIL HYDROCHLORIDE
     Dosage: 10 MG, DAILY?DAILY DOSE: 10 MILLIGRAM
  8. AZOSEMIDE [Concomitant]
     Active Substance: AZOSEMIDE
     Dosage: 30 MG, DAILY?DAILY DOSE: 30 MILLIGRAM
  9. METFORMIN HYDROCHLORIDE [Concomitant]
     Active Substance: METFORMIN HYDROCHLORIDE
     Dosage: 500 MG, DAILY?DAILY DOSE: 500 MILLIGRAM
  10. AMLODIPINE BESYLATE [Concomitant]
     Active Substance: AMLODIPINE BESYLATE
     Dosage: 5 MG, DAILY?DAILY DOSE: 5 MILLIGRAM
  11. ATORVASTATIN CALCIUM [Concomitant]
     Active Substance: ATORVASTATIN CALCIUM
     Dosage: 5 MG, DAILY?DAILY DOSE: 5 MILLIGRAM
  12. Saireito extract fine granules [Concomitant]
     Dosage: 8.1 G, DAILY?DAILY DOSE: 8.1 GRAM
  13. ESZOPICLONE [Concomitant]
     Active Substance: ESZOPICLONE
     Dosage: 3 MG, PRN
  14. Clostridium butyricum preparation [Concomitant]
     Dosage: DAILY DOSE: 40 MILLIGRAM

REACTIONS (4)
  - Chronic kidney disease [Recovering/Resolving]
  - Condition aggravated [Recovering/Resolving]
  - Urinary retention [Unknown]
  - Blood pressure systolic decreased [Unknown]
